FAERS Safety Report 4973765-8 (Version None)
Quarter: 2006Q2

REPORT INFORMATION
  Report Type: 
  Country: None (occurrence: None)
  Receive Date: 20060414
  Receipt Date: 20060404
  Transmission Date: 20061013
  Serious: Yes (Hospitalization)
  Sender: FDA-Public Use
  Company Number: US-MERCK-0604USA00726

PATIENT
  Age: 59 Year
  Sex: Male
  Weight: 85 kg

DRUGS (4)
  1. VIOXX [Suspect]
     Indication: ARTHRALGIA
     Route: 048
     Dates: start: 20020101, end: 20040701
  2. GLYBURIDE [Concomitant]
     Route: 065
  3. METFORMIN [Concomitant]
     Route: 065
  4. ASPIRIN [Concomitant]
     Route: 065

REACTIONS (2)
  - JOINT INJURY [None]
  - MYOCARDIAL INFARCTION [None]
